FAERS Safety Report 19089361 (Version 1)
Quarter: 2021Q2

REPORT INFORMATION
  Report Type: Spontaneous
  Country: US (occurrence: US)
  Receive Date: 20210403
  Receipt Date: 20210403
  Transmission Date: 20210717
  Serious: Yes (Hospitalization, Other)
  Sender: FDA-Public Use
  Company Number: US-CIPLA LTD.-2021US02552

PATIENT

DRUGS (28)
  1. CARBOPLATIN. [Suspect]
     Active Substance: CARBOPLATIN
     Dosage: 217 MG (DAY1, CYCLE2)
     Route: 042
  2. CARBOPLATIN. [Suspect]
     Active Substance: CARBOPLATIN
     Dosage: 224 MG (DAY2, CYCLE 3)
     Route: 042
  3. CARBOPLATIN. [Suspect]
     Active Substance: CARBOPLATIN
     Dosage: 219.8 MG (DAY 1, CYCLE 5)
     Route: 065
  4. CARBOPLATIN. [Suspect]
     Active Substance: CARBOPLATIN
     Dosage: 219.8 MG (DAY 2, CYCLE 5)
     Route: 065
  5. ETOPOSIDE. [Suspect]
     Active Substance: ETOPOSIDE
     Indication: RETINOBLASTOMA
     Dosage: 91.2 MG (DAY1; CYCLE 1)
     Route: 042
  6. CARBOPLATIN. [Suspect]
     Active Substance: CARBOPLATIN
     Dosage: 217 MG (DAY2, CYCLE2)
     Route: 042
  7. ETOPOSIDE. [Suspect]
     Active Substance: ETOPOSIDE
     Dosage: 96 MG (DAY 1; CYCLE 6)
     Route: 065
  8. VINCRISTINE [Suspect]
     Active Substance: VINCRISTINE
     Dosage: 0.8 (DAY 1; CYCLE 2)
     Route: 042
  9. VINCRISTINE [Suspect]
     Active Substance: VINCRISTINE
     Dosage: 0.8 (DAY 1; CYCLE 4)
     Route: 042
  10. CARBOPLATIN. [Suspect]
     Active Substance: CARBOPLATIN
     Dosage: 219.8 MG (DAY 2, CYCLE 4)
     Route: 065
  11. CARBOPLATIN. [Suspect]
     Active Substance: CARBOPLATIN
     Dosage: 219.8 MG (DAY 1, CYCLE 4)
     Route: 065
  12. ETOPOSIDE. [Suspect]
     Active Substance: ETOPOSIDE
     Dosage: 93 MG (DAY 1; CYCLE 2)
     Route: 042
  13. ETOPOSIDE. [Suspect]
     Active Substance: ETOPOSIDE
     Dosage: 93 MG (DAY 2; CYCLE 2)
     Route: 042
  14. ETOPOSIDE. [Suspect]
     Active Substance: ETOPOSIDE
     Dosage: 96 MG (DAY 1; CYCLE 3)
     Route: 042
  15. ETOPOSIDE. [Suspect]
     Active Substance: ETOPOSIDE
     Dosage: 94 MG (DAY 1; CYCLE 4)
     Route: 065
  16. ETOPOSIDE. [Suspect]
     Active Substance: ETOPOSIDE
     Dosage: 96 MG (DAY 2; CYCLE 6)
     Route: 065
  17. CARBOPLATIN. [Suspect]
     Active Substance: CARBOPLATIN
     Dosage: 212.8 MG DAY 2, CYCLE 1
     Route: 042
  18. ETOPOSIDE. [Suspect]
     Active Substance: ETOPOSIDE
     Dosage: 91.2 MG (DAY 2; CYCLE 1)
     Route: 042
  19. VINCRISTINE [Suspect]
     Active Substance: VINCRISTINE
     Dosage: 0.8 (DAY 1; CYCLE 3)
     Route: 042
  20. CARBOPLATIN. [Suspect]
     Active Substance: CARBOPLATIN
     Dosage: 224 MG (DAY1, CYCLE 3)
     Route: 042
  21. ETOPOSIDE. [Suspect]
     Active Substance: ETOPOSIDE
     Dosage: 96 MG (DAY 2; CYCLE 3)
     Route: 042
  22. VINCRISTINE [Suspect]
     Active Substance: VINCRISTINE
     Indication: RETINOBLASTOMA
     Dosage: 0.8 (DAY 1; CYCLE 1)
     Route: 042
  23. VINCRISTINE [Suspect]
     Active Substance: VINCRISTINE
     Dosage: 0.8 (DAY 1; CYCLE 5)
     Route: 042
  24. VINCRISTINE [Suspect]
     Active Substance: VINCRISTINE
     Dosage: 0.8 (DAY 1; CYCLE 6)
     Route: 042
  25. CARBOPLATIN. [Suspect]
     Active Substance: CARBOPLATIN
     Indication: RETINOBLASTOMA
     Dosage: 212.8 MG DAY 1, CYCLE 1
     Route: 042
  26. ETOPOSIDE. [Suspect]
     Active Substance: ETOPOSIDE
     Dosage: 94 MG (DAY 2; CYCLE 4)
     Route: 065
  27. ETOPOSIDE. [Suspect]
     Active Substance: ETOPOSIDE
     Dosage: 94 MG (DAY 1; CYCLE 5)
     Route: 065
  28. ETOPOSIDE. [Suspect]
     Active Substance: ETOPOSIDE
     Dosage: 94 MG (DAY 2; CYCLE 5)
     Route: 065

REACTIONS (6)
  - Toxicity to various agents [Unknown]
  - Febrile neutropenia [Unknown]
  - Neutropenia [Unknown]
  - Thrombocytopenia [Unknown]
  - Anaemia [Unknown]
  - Cytopenia [Unknown]
